FAERS Safety Report 4591572-5 (Version None)
Quarter: 2005Q1

REPORT INFORMATION
  Report Type: 
  Country: None (occurrence: None)
  Receive Date: 20050222
  Receipt Date: 20050211
  Transmission Date: 20050727
  Serious: Yes (Other)
  Sender: FDA-Public Use
  Company Number: HQWYE350315FEB05

PATIENT
  Age: 20 Year
  Sex: Male
  Weight: 74.91 kg

DRUGS (1)
  1. PRIMATENE MIST [Suspect]
     Indication: ASTHMA
     Dosage: 1 PUFF AS NEEDED, INHALATION
     Route: 055
     Dates: start: 20020101

REACTIONS (1)
  - LUNG DISORDER [None]
